FAERS Safety Report 5494056-5 (Version None)
Quarter: 2007Q4

REPORT INFORMATION
  Report Type: 
  Country: None (occurrence: None)
  Receive Date: 20071022
  Receipt Date: 20071011
  Transmission Date: 20080405
  Serious: Yes (Hospitalization, Disabling)
  Sender: FDA-Public Use
  Company Number: 920#8#2007-00006

PATIENT
  Age: 34 Year
  Sex: Male

DRUGS (4)
  1. NIFEDIPINE-DOSE-UNKNOWN-EXTENTED-RELEASE -TABLET (NIFEDIPINE) [Suspect]
     Indication: PAIN IN EXTREMITY
  2. ASPIRIN [Suspect]
     Indication: PAIN IN EXTREMITY
  3. NITROGLYCERIN [Suspect]
  4. HYDROXYUREA [Concomitant]

REACTIONS (3)
  - FINGER AMPUTATION [None]
  - NO THERAPEUTIC RESPONSE [None]
  - PERIPHERAL ISCHAEMIA [None]
